FAERS Safety Report 7712613-X (Version None)
Quarter: 2011Q3

REPORT INFORMATION
  Report Type: 
  Country: None (occurrence: None)
  Receive Date: 20110823
  Receipt Date: 20110808
  Transmission Date: 20111222
  Serious: Yes (Other)
  Sender: FDA-Public Use
  Company Number: MC201100199

PATIENT
  Age: 52 Year
  Sex: Male

DRUGS (6)
  1. CLOPIDOGREL [Suspect]
     Indication: PERCUTANEOUS CORONARY INTERVENTION
  2. ASPIRIN [Suspect]
     Indication: PERCUTANEOUS CORONARY INTERVENTION
  3. PACLITAXEL [Suspect]
     Indication: PERCUTANEOUS CORONARY INTERVENTION
  4. ANGIOMAX [Suspect]
     Indication: PERCUTANEOUS CORONARY INTERVENTION
  5. NICKEL [Suspect]
     Indication: PERCUTANEOUS CORONARY INTERVENTION
  6. SIROLIMUS [Suspect]
     Indication: PERCUTANEOUS CORONARY INTERVENTION

REACTIONS (9)
  - ANGINA PECTORIS [None]
  - CORONARY ARTERY OCCLUSION [None]
  - KOUNIS SYNDROME [None]
  - MYOCARDIAL INFARCTION [None]
  - HYPERHIDROSIS [None]
  - INFLAMMATION [None]
  - BLOOD PRESSURE INCREASED [None]
  - DYSPNOEA [None]
  - THROMBOSIS IN DEVICE [None]
